FAERS Safety Report 21978424 (Version 1)
Quarter: 2023Q1

REPORT INFORMATION
  Report Type: Spontaneous
  Country: US (occurrence: US)
  Receive Date: 20230210
  Receipt Date: 20230210
  Transmission Date: 20230418
  Serious: Yes (Other)
  Sender: FDA-Public Use
  Company Number: US-TEVA-2023-US-2852304

PATIENT
  Age: 17 Year
  Sex: Female

DRUGS (1)
  1. JUNEL FE 1/20 [Suspect]
     Active Substance: ETHINYL ESTRADIOL\NORETHINDRONE ACETATE
     Indication: Product used for unknown indication
     Dosage: 1-20 MG-MCG
     Route: 065

REACTIONS (2)
  - Ischaemic stroke [Unknown]
  - Thrombosis [Unknown]

NARRATIVE: CASE EVENT DATE: 20230119
